FAERS Safety Report 6099876-4 (Version None)
Quarter: 2009Q1

REPORT INFORMATION
  Report Type: 
  Country: None (occurrence: None)
  Receive Date: 20090303
  Receipt Date: 20090227
  Transmission Date: 20090719
  Serious: Yes (Death)
  Sender: FDA-Public Use
  Company Number: PHHY2009BR07145

PATIENT
  Age: 85 Year
  Sex: Female

DRUGS (1)
  1. STALEVO 100 [Suspect]
     Dosage: (50/12.5/200) MG

REACTIONS (3)
  - CARDIAC ARREST [None]
  - LUNG DISORDER [None]
  - MULTI-ORGAN FAILURE [None]
